FAERS Safety Report 4895006-2 (Version None)
Quarter: 2006Q1

REPORT INFORMATION
  Report Type: 
  Country: None (occurrence: None)
  Receive Date: 20060130
  Receipt Date: 20050822
  Transmission Date: 20060701
  Serious: No
  Sender: FDA-Public Use
  Company Number: US-BRISTOL-MYERS SQUIBB COMPANY-13085154

PATIENT
  Age: 48 Year
  Sex: Female
  Weight: 95 kg

DRUGS (5)
  1. GLUCOPHAGE [Suspect]
     Indication: DIABETES MELLITUS NON-INSULIN-DEPENDENT
     Dates: start: 20050725
  2. COZAAR [Concomitant]
  3. LEVOXYL [Concomitant]
  4. HYDROCHLOROTHIAZIDE [Concomitant]
  5. TYLENOL-500 [Concomitant]

REACTIONS (2)
  - BLOOD GLUCOSE INCREASED [None]
  - DIARRHOEA [None]
